FAERS Safety Report 19299967 (Version 1)
Quarter: 2021Q2

REPORT INFORMATION
  Report Type: Report from Study
  Country: US (occurrence: US)
  Receive Date: 20210524
  Receipt Date: 20210524
  Transmission Date: 20210717
  Serious: Yes (Other)
  Sender: FDA-Public Use
  Company Number: US-JNJFOC-20181103013

PATIENT
  Age: 57 Year
  Sex: Male

DRUGS (8)
  1. IMBRUVICA [Suspect]
     Active Substance: IBRUTINIB
     Dosage: 420 MG, QD
     Route: 048
     Dates: start: 20190503
  2. IMBRUVICA [Suspect]
     Active Substance: IBRUTINIB
     Dosage: 420 MG, QD
     Route: 048
     Dates: start: 20190601
  3. IMBRUVICA [Suspect]
     Active Substance: IBRUTINIB
     Dosage: 420 MG, QD
     Route: 048
     Dates: start: 20181020
  4. IMBRUVICA [Suspect]
     Active Substance: IBRUTINIB
     Indication: CHRONIC LYMPHOCYTIC LEUKAEMIA
     Dosage: 420 MG, QD
     Route: 048
     Dates: start: 20181019
  5. IMBRUVICA [Suspect]
     Active Substance: IBRUTINIB
     Dosage: 420 MG, QD
     Route: 048
     Dates: start: 20190205
  6. TRAMADOL HYDROCHLORIDE. [Suspect]
     Active Substance: TRAMADOL HYDROCHLORIDE
     Indication: PRODUCT USED FOR UNKNOWN INDICATION
     Dosage: UNK
     Route: 065
  7. IMBRUVICA [Suspect]
     Active Substance: IBRUTINIB
     Dosage: 420 MG, QD
     Route: 048
     Dates: start: 20190308
  8. IMBRUVICA [Suspect]
     Active Substance: IBRUTINIB
     Route: 048

REACTIONS (26)
  - Splenomegaly [Unknown]
  - Weight loss poor [Unknown]
  - Arthralgia [Unknown]
  - Oral blood blister [Unknown]
  - Oropharyngeal pain [Unknown]
  - Sinusitis [Unknown]
  - Feeling abnormal [Unknown]
  - Weight increased [Unknown]
  - Myalgia [Not Recovered/Not Resolved]
  - Neck pain [Unknown]
  - Hot flush [Unknown]
  - Weight decreased [Unknown]
  - Platelet count decreased [Unknown]
  - Hyperhidrosis [Unknown]
  - White blood cell count increased [Not Recovered/Not Resolved]
  - Fatigue [Not Recovered/Not Resolved]
  - Back pain [Unknown]
  - Rotator cuff syndrome [Unknown]
  - Constipation [Unknown]
  - Diarrhoea [Unknown]
  - Pain in extremity [Unknown]
  - Upper respiratory tract infection [Unknown]
  - Cough [Unknown]
  - Nasopharyngitis [Unknown]
  - Dry eye [Unknown]
  - White blood cell count abnormal [Unknown]
